FAERS Safety Report 22356701 (Version 2)
Quarter: 2023Q2

REPORT INFORMATION
  Report Type: Spontaneous
  Country: US (occurrence: US)
  Receive Date: 20230523
  Receipt Date: 20230619
  Transmission Date: 20230722
  Serious: No
  Sender: FDA-Public Use
  Company Number: US-PFIZER INC-PV202300074910

PATIENT
  Age: 83 Year
  Sex: Male
  Weight: 89.796 kg

DRUGS (1)
  1. SUTENT [Suspect]
     Active Substance: SUNITINIB MALATE
     Indication: Gastrointestinal stromal tumour
     Dosage: 50 MG, CYCLIC (D 1-21 OF 28 THEN OFF 2 WEEKS)
     Route: 048
     Dates: start: 20220818

REACTIONS (1)
  - Off label use [Unknown]
